FAERS Safety Report 10571766 (Version 1)
Quarter: 2014Q4

REPORT INFORMATION
  Report Type: Spontaneous
  Country: US (occurrence: US)
  Receive Date: 20141107
  Receipt Date: 20141107
  Transmission Date: 20150529
  Serious: No
  Sender: FDA-Public Use
  Company Number: US-009507513-1408USA012359

PATIENT
  Sex: Female

DRUGS (1)
  1. MIRALAX [Suspect]
     Active Substance: POLYETHYLENE GLYCOL 3350
     Indication: PRODUCT USED FOR UNKNOWN INDICATION
     Dosage: UNK, UNKNOWN;
     Route: 048

REACTIONS (5)
  - Drug ineffective [Unknown]
  - Constipation [Not Recovered/Not Resolved]
  - Irritable bowel syndrome [Unknown]
  - Dehydration [Unknown]
  - Drug prescribing error [Unknown]
